FAERS Safety Report 20053551 (Version 1)
Quarter: 2021Q4

REPORT INFORMATION
  Report Type: Spontaneous
  Country: US (occurrence: US)
  Receive Date: 20211110
  Receipt Date: 20211110
  Transmission Date: 20220303
  Serious: Yes (Other)
  Sender: FDA-Public Use
  Company Number: US-PROCTER_AND_GAMBLE-GS21101020

PATIENT

DRUGS (1)
  1. CREST PRO-HEALTH SENSITIVIVE AND ENAMEL SHIELD [Suspect]
     Active Substance: STANNOUS FLUORIDE
     Dosage: UNK
     Route: 002

REACTIONS (1)
  - Anaphylactic reaction [Unknown]

NARRATIVE: CASE EVENT DATE: 20211028
